FAERS Safety Report 5511451-6 (Version None)
Quarter: 2007Q4

REPORT INFORMATION
  Report Type: 
  Country: None (occurrence: None)
  Receive Date: 20071109
  Receipt Date: 20071106
  Transmission Date: 20080405
  Serious: Yes (Other)
  Sender: FDA-Public Use
  Company Number: JP-JNJFOC-20071100888

PATIENT
  Age: 50 Year
  Sex: Female

DRUGS (4)
  1. ITRIZOLE [Suspect]
     Indication: NAIL TINEA
     Route: 048
  2. FOOD [Interacting]
     Indication: MEDICAL DIET
     Route: 065
  3. LORFENAMIN [Concomitant]
     Route: 048
  4. TEPRENONE [Concomitant]
     Route: 048

REACTIONS (3)
  - DRUG INTERACTION [None]
  - HYPERTENSION [None]
  - PALPITATIONS [None]
